FAERS Safety Report 12718182 (Version 1)
Quarter: 2016Q3

REPORT INFORMATION
  Report Type: Spontaneous
  Country: US (occurrence: US)
  Receive Date: 20160906
  Receipt Date: 20160906
  Transmission Date: 20161109
  Serious: Yes (Death)
  Sender: FDA-Public Use
  Company Number: US-ELI_LILLY_AND_COMPANY-US201609000756

PATIENT

DRUGS (3)
  1. PACLITAXEL ALBUMIN [Suspect]
     Active Substance: PACLITAXEL
     Indication: ADENOCARCINOMA PANCREAS
     Dosage: 100 MG/M2, CYCLICAL
     Route: 065
  2. EVOFOSFAMIDE [Suspect]
     Active Substance: EVOFOSFAMIDE
     Indication: ADENOCARCINOMA PANCREAS
     Dosage: 170 MG/M2, CYCLICAL
     Route: 065
  3. GEMCITABINE HYDROCHLORIDE. [Suspect]
     Active Substance: GEMCITABINE HYDROCHLORIDE
     Indication: ADENOCARCINOMA PANCREAS
     Dosage: 800 MG/M2, CYCLICAL
     Route: 065

REACTIONS (1)
  - Sepsis [Fatal]
